FAERS Safety Report 4273330-4 (Version None)
Quarter: 2004Q1

REPORT INFORMATION
  Report Type: 
  Country: None (occurrence: None)
  Receive Date: 20040114
  Receipt Date: 20040106
  Transmission Date: 20041129
  Serious: Yes (Hospitalization)
  Sender: FDA-Public Use
  Company Number: 2004192992GB

PATIENT
  Age: 67 Year
  Sex: Male

DRUGS (7)
  1. SALAZOPYRIN(SULFASALAZINE) ENEMA [Suspect]
     Indication: RHEUMATOID ARTHRITIS
     Dosage: 500 MG, QD, ORAL
     Route: 048
     Dates: start: 20031201, end: 20031215
  2. WARFARIN SODIUM [Concomitant]
  3. ATENOLOL [Concomitant]
  4. FINASTERIDE [Concomitant]
  5. BENDROFLUAZIDE [Concomitant]
  6. DOXAZOSIN MESYLATE [Concomitant]
  7. CLOPIDOGREL BISULFATE [Concomitant]

REACTIONS (4)
  - DIARRHOEA [None]
  - INTERNATIONAL NORMALISED RATIO INCREASED [None]
  - MALLORY-WEISS SYNDROME [None]
  - VOMITING [None]
